FAERS Safety Report 9539963 (Version 1)
Quarter: 2013Q3

REPORT INFORMATION
  Report Type: Report from Study
  Country: CA (occurrence: CA)
  Receive Date: 20130920
  Receipt Date: 20130920
  Transmission Date: 20140515
  Serious: Yes (Other)
  Sender: FDA-Public Use
  Company Number: CA-JNJFOC-20130908782

PATIENT
  Age: 56 Year
  Sex: Female
  Weight: 83.2 kg

DRUGS (5)
  1. REMICADE [Suspect]
     Indication: COLITIS ULCERATIVE
     Dosage: STATUS: REPORTED AS TO BE DECIDED
     Route: 042
     Dates: start: 20110511
  2. IMURAN [Concomitant]
     Route: 065
  3. CELEBREX [Concomitant]
     Route: 065
  4. ATENOLOL [Concomitant]
     Route: 065
  5. AMITRIPTYLINE [Concomitant]
     Route: 065

REACTIONS (1)
  - Stress fracture [Not Recovered/Not Resolved]
